FAERS Safety Report 5786093-8 (Version None)
Quarter: 2008Q2

REPORT INFORMATION
  Report Type: 
  Country: None (occurrence: None)
  Receive Date: 20080620
  Receipt Date: 20080620
  Transmission Date: 20081010
  Serious: Yes (Life-Threatening, Other)
  Sender: FDA-Public Use
  Company Number: None

PATIENT
  Sex: Female
  Weight: 87.5442 kg

DRUGS (1)
  1. BUDEPRION XL  300  TEVA [Suspect]
     Indication: DEPRESSION
     Dosage: 300 MG QD PO
     Route: 048
     Dates: start: 20071110, end: 20080413

REACTIONS (5)
  - AFFECT LABILITY [None]
  - DEPRESSION [None]
  - IMPAIRED WORK ABILITY [None]
  - LOSS OF EMPLOYMENT [None]
  - WEIGHT INCREASED [None]
